FAERS Safety Report 9230081 (Version 1)
Quarter: 2013Q2

REPORT INFORMATION
  Report Type: Spontaneous
  Country: US (occurrence: None)
  Receive Date: 20130412
  Receipt Date: 20130412
  Transmission Date: 20140414
  Serious: Yes (Hospitalization)
  Sender: FDA-Public Use
  Company Number: None

PATIENT
  Age: 75 Year
  Sex: Male
  Weight: 75 kg

DRUGS (8)
  1. YERVOY [Suspect]
     Dates: start: 20121220, end: 20130220
  2. SYLATRON [Suspect]
     Dates: start: 20121220, end: 20130306
  3. PLAVIX [Concomitant]
  4. VERAPAMIL [Concomitant]
  5. METOPROLOL [Concomitant]
  6. CRESTOR [Concomitant]
  7. MEGA RED KRILL OIL [Concomitant]
  8. OCCUVITE [Concomitant]

REACTIONS (2)
  - Pneumonia [None]
  - Acute myocardial infarction [None]
